FAERS Safety Report 5329551-2 (Version None)
Quarter: 2007Q1

REPORT INFORMATION
  Report Type: 
  Country: None (occurrence: None)
  Receive Date: 20070227
  Receipt Date: 20061020
  Transmission Date: 20070707
  Serious: Yes (Other)
  Sender: FDA-Public Use
  Company Number: 468438

PATIENT
  Age: 15 Year
  Sex: Female
  Weight: 77.1 kg

DRUGS (1)
  1. ACCUTANE [Suspect]
     Indication: ACNE
     Dosage: ORAL
     Route: 048
     Dates: start: 19850615, end: 19870615

REACTIONS (10)
  - ANAEMIA [None]
  - ARTHRITIS [None]
  - BINOCULAR EYE MOVEMENT DISORDER [None]
  - CROHN'S DISEASE [None]
  - EMOTIONAL DISTRESS [None]
  - ERYTHEMA NODOSUM [None]
  - HEADACHE [None]
  - PYODERMA [None]
  - PYODERMA GANGRENOSUM [None]
  - TENDONITIS [None]
